FAERS Safety Report 9120600 (Version 1)
Quarter: 2013Q1

REPORT INFORMATION
  Report Type: Spontaneous
  Country: US (occurrence: US)
  Receive Date: 20130226
  Receipt Date: 20130226
  Transmission Date: 20140127
  Serious: Yes (Other)
  Sender: FDA-Public Use
  Company Number: US-ENDO PHARMACEUTICALS INC.-MSER20130004

PATIENT
  Sex: Female

DRUGS (1)
  1. MORPHINE SULFATE ER [Suspect]
     Indication: PAIN
     Dosage: UNKNOWN
     Route: 065

REACTIONS (1)
  - Gastrointestinal motility disorder [Recovered/Resolved]
